FAERS Safety Report 5565428-5 (Version None)
Quarter: 2007Q4

REPORT INFORMATION
  Report Type: 
  Country: None (occurrence: None)
  Receive Date: 20071218
  Receipt Date: 20071211
  Transmission Date: 20080405
  Serious: Yes (Other)
  Sender: FDA-Public Use
  Company Number: US-PFIZER INC-2007104273

PATIENT
  Sex: Male

DRUGS (5)
  1. BEXTRA [Suspect]
     Indication: NECK PAIN
  2. BEXTRA [Suspect]
     Indication: MUSCULOSKELETAL PAIN
  3. VICODIN [Concomitant]
  4. BACTRIM [Concomitant]
  5. DARVOCET [Concomitant]

REACTIONS (1)
  - STEVENS-JOHNSON SYNDROME [None]
